FAERS Safety Report 5050400-4 (Version None)
Quarter: 2006Q3

REPORT INFORMATION
  Report Type: 
  Country: None (occurrence: None)
  Receive Date: 20060707
  Receipt Date: 20060626
  Transmission Date: 20061208
  Serious: Yes (Hospitalization)
  Sender: FDA-Public Use
  Company Number: 2006-144650-NL

PATIENT
  Age: 63 Year
  Sex: Male

DRUGS (5)
  1. MIRTAZAPINE [Suspect]
     Dosage: 7.5 MG/30 MG/45 MG
     Route: 048
     Dates: start: 20060415, end: 20060416
  2. MIRTAZAPINE [Suspect]
     Dosage: 7.5 MG/30 MG/45 MG
     Route: 048
     Dates: start: 20060417, end: 20060420
  3. MIRTAZAPINE [Suspect]
     Dosage: 7.5 MG/30 MG/45 MG
     Route: 048
     Dates: start: 20060421
  4. ZOLPIDEM TARTRATE [Concomitant]
  5. DIAZEPAM [Concomitant]

REACTIONS (4)
  - ATRIAL FIBRILLATION [None]
  - ATRIAL FLUTTER [None]
  - CHEST PAIN [None]
  - DYSPNOEA EXERTIONAL [None]
